FAERS Safety Report 6756116-8 (Version None)
Quarter: 2010Q2

REPORT INFORMATION
  Report Type: 
  Country: None (occurrence: None)
  Receive Date: 20100604
  Receipt Date: 20100526
  Transmission Date: 20101027
  Serious: Yes (Other)
  Sender: FDA-Public Use
  Company Number: FR-PFIZER INC-2010066110

PATIENT
  Sex: Male

DRUGS (3)
  1. TAHOR [Suspect]
     Indication: CEREBROVASCULAR ACCIDENT
     Dosage: 80 MG, UNK
  2. COVERSYL [Concomitant]
     Dosage: UNK
  3. PLAVIX [Concomitant]
     Dosage: UNK

REACTIONS (1)
  - MYOCLONUS [None]
